FAERS Safety Report 6736654-4 (Version None)
Quarter: 2010Q2

REPORT INFORMATION
  Report Type: 
  Country: None (occurrence: None)
  Receive Date: 20100521
  Receipt Date: 20100510
  Transmission Date: 20101027
  Serious: Yes (Other)
  Sender: FDA-Public Use
  Company Number: US-ELI_LILLY_AND_COMPANY-US201005003213

PATIENT
  Age: 31 Year
  Sex: Male

DRUGS (3)
  1. EFFIENT [Suspect]
     Indication: CORONARY ARTERIAL STENT INSERTION
     Dosage: 60 MG, OTHER
     Dates: start: 20100501
  2. EFFIENT [Suspect]
     Dosage: 10 MG, UNKNOWN
     Dates: start: 20100501
  3. ANGIOMAX [Concomitant]
     Dates: start: 20100501

REACTIONS (1)
  - THROMBOSIS IN DEVICE [None]
